FAERS Safety Report 12485316 (Version 2)
Quarter: 2016Q3

REPORT INFORMATION
  Report Type: Spontaneous
  Country: JP (occurrence: JP)
  Receive Date: 20160621
  Receipt Date: 20160826
  Transmission Date: 20161109
  Serious: Yes (Other)
  Sender: FDA-Public Use
  Company Number: PHJP2016JP016810

PATIENT
  Age: 85 Year
  Sex: Male

DRUGS (3)
  1. HOKUNALIN [Concomitant]
     Active Substance: TULOBUTEROL
     Indication: PRODUCT USED FOR UNKNOWN INDICATION
     Dosage: UNK
     Route: 062
  2. ULTIBRO INHALATION CAPSULES [Suspect]
     Active Substance: GLYCOPYRRONIUM\INDACATEROL
     Indication: CHRONIC OBSTRUCTIVE PULMONARY DISEASE
     Dosage: UNK
     Route: 055
  3. HOKUNALIN [Concomitant]
     Active Substance: TULOBUTEROL
     Dosage: UNK
     Route: 062

REACTIONS (3)
  - Dementia Alzheimer^s type [Unknown]
  - Dyspnoea [Unknown]
  - Tachycardia [Unknown]
